FAERS Safety Report 16545906 (Version 1)
Quarter: 2019Q3

REPORT INFORMATION
  Report Type: Spontaneous
  Country: US (occurrence: US)
  Receive Date: 20190709
  Receipt Date: 20190709
  Transmission Date: 20191004
  Serious: Yes (Hospitalization)
  Sender: FDA-Public Use
  Company Number: US-THE RITEDOSE CORPORATION-2019RIT000192

PATIENT

DRUGS (2)
  1. IPRATROPIUM BROMIDE AND ALBUTEROL SULFATE [Suspect]
     Active Substance: ALBUTEROL SULFATE\IPRATROPIUM BROMIDE
     Indication: ASTHMA
     Dosage: 1 VIAL, Q4H
     Route: 055
  2. IPRATROPIUM BROMIDE AND ALBUTEROL SULFATE [Suspect]
     Active Substance: ALBUTEROL SULFATE\IPRATROPIUM BROMIDE
     Dosage: 1 VIAL, PRN
     Route: 055

REACTIONS (10)
  - Drug ineffective [Unknown]
  - Product use in unapproved indication [Unknown]
  - Suspected product quality issue [Unknown]
  - Oxygen saturation decreased [Recovering/Resolving]
  - Liquid product physical issue [Unknown]
  - Malaise [Recovered/Resolved]
  - Oxygen therapy [Not Recovered/Not Resolved]
  - Hypersensitivity [Recovered/Resolved]
  - Mycotic allergy [Unknown]
  - Dyspnoea [Recovered/Resolved]

NARRATIVE: CASE EVENT DATE: 201906
